FAERS Safety Report 9082958 (Version 1)
Quarter: 2013Q1

REPORT INFORMATION
  Report Type: Spontaneous
  Country: NG (occurrence: NG)
  Receive Date: 20130130
  Receipt Date: 20130130
  Transmission Date: 20140127
  Serious: Yes (Death)
  Sender: FDA-Public Use
  Company Number: PHHY2013NG008293

PATIENT
  Age: 53 Year
  Sex: Female

DRUGS (3)
  1. ZOMETA [Suspect]
     Indication: BONE DISORDER
     Dosage: 4 MG
     Route: 042
  2. ENOXAPARIN [Suspect]
     Dosage: 40 MG, EVERY 2/ 7
     Route: 058
  3. NORGESIC TABLETS [Suspect]
     Dosage: UNK UKN, UNK
     Route: 048

REACTIONS (3)
  - Malaria [Fatal]
  - Pyrexia [Fatal]
  - Chills [Fatal]
